FAERS Safety Report 21169039 (Version 1)
Quarter: 2022Q3

REPORT INFORMATION
  Report Type: Spontaneous
  Country: FR (occurrence: FR)
  Receive Date: 20220803
  Receipt Date: 20220803
  Transmission Date: 20221026
  Serious: Yes (Other)
  Sender: FDA-Public Use
  Company Number: None

PATIENT
  Age: 47 Year
  Sex: Female
  Weight: 59 kg

DRUGS (5)
  1. KEYTRUDA [Suspect]
     Active Substance: PEMBROLIZUMAB
     Indication: Breast cancer
     Dosage: 200 MILLIGRAM, Q3W
     Route: 042
     Dates: start: 20220520, end: 20220610
  2. CARBOPLATIN [Concomitant]
     Active Substance: CARBOPLATIN
     Indication: Breast cancer
     Dosage: 685 MILLIGRAM, ONCE, TOTAL
     Route: 042
     Dates: start: 20220610, end: 20220610
  3. CARBOPLATIN [Concomitant]
     Active Substance: CARBOPLATIN
     Dosage: 610 MILLIGRAM, ONCE, TOTAL
     Route: 042
     Dates: start: 20220520, end: 20220520
  4. PACLITAXEL [Concomitant]
     Active Substance: PACLITAXEL
     Indication: Breast cancer
     Dosage: 131 MILLIGRAM, QW
     Route: 042
     Dates: start: 20220407, end: 20220428
  5. PACLITAXEL [Concomitant]
     Active Substance: PACLITAXEL
     Dosage: 89 MILLIGRAM, QW
     Route: 042
     Dates: start: 20220520, end: 20220624

REACTIONS (5)
  - Hepatic cytolysis [Recovered/Resolved]
  - Hyperthyroidism [Not Recovered/Not Resolved]
  - Retinal detachment [Not Recovered/Not Resolved]
  - Choroidal detachment [Not Recovered/Not Resolved]
  - Low density lipoprotein increased [Not Recovered/Not Resolved]

NARRATIVE: CASE EVENT DATE: 20220628
